FAERS Safety Report 12643086 (Version 1)
Quarter: 2016Q3

REPORT INFORMATION
  Report Type: Spontaneous
  Country: US (occurrence: US)
  Receive Date: 20160811
  Receipt Date: 20160811
  Transmission Date: 20161109
  Serious: No
  Sender: FDA-Public Use
  Company Number: US-BIOGEN-2016BI00276598

PATIENT
  Sex: Male

DRUGS (1)
  1. AVONEX [Suspect]
     Active Substance: INTERFERON BETA-1A
     Indication: MULTIPLE SCLEROSIS
     Route: 065

REACTIONS (8)
  - Neck pain [Unknown]
  - Nasopharyngitis [Unknown]
  - Insomnia [Unknown]
  - Arthralgia [Unknown]
  - Influenza like illness [Recovered/Resolved]
  - Burning sensation [Unknown]
  - Back pain [Unknown]
  - Fatigue [Recovered/Resolved]
